FAERS Safety Report 16304719 (Version 1)
Quarter: 2019Q2

REPORT INFORMATION
  Report Type: Spontaneous
  Country: US (occurrence: US)
  Receive Date: 20190513
  Receipt Date: 20190513
  Transmission Date: 20190711
  Serious: Yes (Other)
  Sender: FDA-Public Use
  Company Number: US-PFIZER INC-2019196357

PATIENT
  Age: 88 Year
  Sex: Male
  Weight: 61 kg

DRUGS (1)
  1. TOVIAZ [Suspect]
     Active Substance: FESOTERODINE FUMARATE
     Indication: HYPERTONIC BLADDER
     Dosage: 1 DF, 1X/DAY
     Route: 048
     Dates: start: 2019

REACTIONS (2)
  - Gait disturbance [Unknown]
  - Fatigue [Unknown]
